FAERS Safety Report 21778057 (Version 2)
Quarter: 2022Q4

REPORT INFORMATION
  Report Type: Report from Study
  Country: GB (occurrence: GB)
  Receive Date: 20221226
  Receipt Date: 20221229
  Transmission Date: 20230113
  Serious: Yes (Other)
  Sender: FDA-Public Use
  Company Number: GB-GLAXOSMITHKLINE-GB2020EME091602

PATIENT

DRUGS (3)
  1. MEPOLIZUMAB [Suspect]
     Active Substance: MEPOLIZUMAB
     Indication: Asthma
     Dosage: 100 MG, Z (EVERY 4 WEEKS)
     Dates: start: 202005
  2. MEPOLIZUMAB [Suspect]
     Active Substance: MEPOLIZUMAB
     Indication: Product used for unknown indication
     Dosage: 100 MG
  3. ASTRAZENECA COVID-19 VACCINE [Suspect]
     Active Substance: AZD-1222
     Indication: Prophylaxis
     Dosage: UNK

REACTIONS (14)
  - Lower respiratory tract infection [Unknown]
  - Hallucination [Unknown]
  - Seasonal allergy [Unknown]
  - Nasal congestion [Unknown]
  - Sneezing [Unknown]
  - Memory impairment [Unknown]
  - Malaise [Unknown]
  - Somnolence [Unknown]
  - Gait disturbance [Unknown]
  - Muscular weakness [Unknown]
  - Hypopnoea [Unknown]
  - Mental disorder [Unknown]
  - Drug ineffective [Unknown]
  - Product dose omission issue [Unknown]
